FAERS Safety Report 24846755 (Version 2)
Quarter: 2025Q1

REPORT INFORMATION
  Report Type: Spontaneous
  Country: US (occurrence: US)
  Receive Date: 20250115
  Receipt Date: 20250130
  Transmission Date: 20250409
  Serious: No
  Sender: FRESENIUS KABI
  Company Number: US-FreseniusKabi-FK202500595

PATIENT
  Age: 59 Year
  Sex: Male
  Weight: 79 kg

DRUGS (2)
  1. HEPARIN SODIUM\SODIUM CHLORIDE [Suspect]
     Active Substance: HEPARIN SODIUM\SODIUM CHLORIDE
     Indication: Pulmonary embolism
  2. HEPARIN SODIUM\SODIUM CHLORIDE [Suspect]
     Active Substance: HEPARIN SODIUM\SODIUM CHLORIDE
     Indication: Deep vein thrombosis

REACTIONS (1)
  - Therapeutic product effect decreased [Unknown]
